FAERS Safety Report 18029257 (Version 2)
Quarter: 2020Q3

REPORT INFORMATION
  Report Type: Spontaneous
  Country: FR (occurrence: FR)
  Receive Date: 20200715
  Receipt Date: 20200806
  Transmission Date: 20201103
  Serious: Yes (Other)
  Sender: FDA-Public Use
  Company Number: NVSC2020FR198214

PATIENT
  Age: 54 Year
  Sex: Female
  Weight: 65 kg

DRUGS (6)
  1. TACROLIMUS. [Suspect]
     Active Substance: TACROLIMUS
     Indication: RENAL TRANSPLANT
     Dosage: UNK QD, (5.50 UNITS NOT REPORTED, ONCE DAILY)
     Route: 065
     Dates: start: 20181218
  2. TACROLIMUS. [Suspect]
     Active Substance: TACROLIMUS
     Dosage: 5 MG, QD
     Route: 065
     Dates: start: 20190615
  3. TACROLIMUS. [Suspect]
     Active Substance: TACROLIMUS
     Dosage: UNK QD, (5.00 UNITS NOT REPORTED, ONCE DAILY)
     Route: 065
     Dates: start: 20190615
  4. CORTANCYL [Concomitant]
     Active Substance: PREDNISONE
     Indication: IMMUNOSUPPRESSANT DRUG THERAPY
     Dosage: UNK UNK, QD (5 UNIT NOT PROVIDED, ONCE DAILY)
     Route: 065
     Dates: start: 20171203
  5. CELLCEPT [Concomitant]
     Active Substance: MYCOPHENOLATE MOFETIL\MYCOPHENOLATE MOFETIL HYDROCHLORIDE
     Indication: IMMUNOSUPPRESSANT DRUG THERAPY
     Dosage: UNK UNK, QD (750 UNIT NOT PROVIDED)
     Route: 065
     Dates: start: 20170321
  6. TACROLIMUS. [Suspect]
     Active Substance: TACROLIMUS
     Dosage: 5.5 MG, QD
     Route: 065
     Dates: start: 20181218, end: 20190614

REACTIONS (3)
  - Disease recurrence [Not Recovered/Not Resolved]
  - Urinary bladder adenoma [Recovered/Resolved]
  - Urinary bladder adenoma [Not Recovered/Not Resolved]

NARRATIVE: CASE EVENT DATE: 20190114
